FAERS Safety Report 9124079 (Version 1)
Quarter: 2013Q1

REPORT INFORMATION
  Report Type: Spontaneous
  Country: US (occurrence: US)
  Receive Date: 20130116
  Receipt Date: 20130116
  Transmission Date: 20140127
  Serious: No
  Sender: FDA-Public Use
  Company Number: US-PFIZER INC-2013015209

PATIENT
  Age: 72 Year
  Sex: Female

DRUGS (1)
  1. FLAGYL [Suspect]
     Dosage: UNK

REACTIONS (7)
  - Drug hypersensitivity [Unknown]
  - Decreased appetite [Unknown]
  - Headache [Unknown]
  - Burning sensation [Unknown]
  - Back pain [Unknown]
  - Vulvovaginal discomfort [Unknown]
  - Visual impairment [Unknown]
